FAERS Safety Report 9531001 (Version 1)
Quarter: 2013Q2

REPORT INFORMATION
  Report Type: Spontaneous
  Country: US (occurrence: None)
  Receive Date: 20130429
  Receipt Date: 20130429
  Transmission Date: 20140414
  Serious: Yes (Hospitalization)
  Sender: FDA-Public Use
  Company Number: JPI-P-025536

PATIENT
  Age: 17 Year
  Sex: Female

DRUGS (1)
  1. LUVOX CR [Suspect]
     Indication: OBSESSIVE-COMPULSIVE DISORDER
     Dosage: 200 MG  (200 MG, 1 IN 1 D), ORAL
     Route: 048
     Dates: start: 201209

REACTIONS (3)
  - Oedema [None]
  - Weight increased [None]
  - Localised oedema [None]
